FAERS Safety Report 12398564 (Version 1)
Quarter: 2016Q2

REPORT INFORMATION
  Report Type: Report from Study
  Country: BR (occurrence: BR)
  Receive Date: 20160524
  Receipt Date: 20160524
  Transmission Date: 20160815
  Serious: Yes (Death, Hospitalization)
  Sender: FDA-Public Use
  Company Number: PHHY2016BR071254

PATIENT
  Age: 75 Year
  Sex: Female
  Weight: 72 kg

DRUGS (4)
  1. DIOVAN HCT [Suspect]
     Active Substance: HYDROCHLOROTHIAZIDE\VALSARTAN
     Dosage: 1 DF (160 MG VALSARTAN AND 25 MG HYDROCHLOROTHIAZIDE), QD
     Route: 048
  2. DIOVAN [Suspect]
     Active Substance: VALSARTAN
     Indication: HYPERTENSION
     Dosage: 1 DF, QD (160)
     Route: 048
  3. DIOVAN HCT [Suspect]
     Active Substance: HYDROCHLOROTHIAZIDE\VALSARTAN
     Indication: HYPERTENSION
     Dosage: (160 MG VALSARTAN AND 12.5 MG HYDROCHLOROTHIAZIDE)
     Route: 065
  4. DIOVAN HCT [Suspect]
     Active Substance: HYDROCHLOROTHIAZIDE\VALSARTAN
     Dosage: 0.5 DF (160 MG VALSARTAN AND 25 MG HYDROCHLOROTHIAZIDE), QD
     Route: 048

REACTIONS (6)
  - Fall [Recovering/Resolving]
  - Wrong technique in product usage process [Unknown]
  - Septic shock [Fatal]
  - Osteomyelitis [Fatal]
  - Nosocomial infection [Fatal]
  - Fracture [Recovering/Resolving]

NARRATIVE: CASE EVENT DATE: 20160219
